FAERS Safety Report 5252334-9 (Version None)
Quarter: 2007Q1

REPORT INFORMATION
  Report Type: 
  Country: None (occurrence: None)
  Receive Date: 20070301
  Receipt Date: 20060301
  Transmission Date: 20070707
  Serious: Yes (Other)
  Sender: FDA-Public Use
  Company Number: US-BRISTOL-MYERS SQUIBB COMPANY-13393830

PATIENT
  Age: 27 Year
  Sex: Female

DRUGS (6)
  1. TAXOL [Suspect]
     Route: 042
     Dates: start: 20060125, end: 20060125
  2. BENADRYL [Concomitant]
     Indication: PREMEDICATION
  3. PEPCID [Concomitant]
     Indication: PREMEDICATION
  4. KYTRIL [Concomitant]
     Indication: PREMEDICATION
  5. ATIVAN [Concomitant]
     Indication: PREMEDICATION
  6. DEXAMETHASONE [Concomitant]
     Indication: PREMEDICATION

REACTIONS (4)
  - DYSPNOEA [None]
  - GASTROINTESTINAL PAIN [None]
  - PRURITUS [None]
  - TACHYCARDIA [None]
